FAERS Safety Report 15981558 (Version 3)
Quarter: 2019Q4

REPORT INFORMATION
  Report Type: Spontaneous
  Country: US (occurrence: US)
  Receive Date: 20190219
  Receipt Date: 20191011
  Transmission Date: 20200122
  Serious: Yes (Other)
  Sender: FDA-Public Use
  Company Number: US-PFIZER INC-2019069321

PATIENT
  Age: 58 Year
  Sex: Female

DRUGS (3)
  1. XELJANZ XR [Suspect]
     Active Substance: TOFACITINIB CITRATE
     Indication: PSORIATIC ARTHROPATHY
     Dosage: 11 MG, DAILY
     Route: 048
     Dates: start: 201902
  2. XELJANZ XR [Suspect]
     Active Substance: TOFACITINIB CITRATE
     Indication: PSORIASIS
  3. ORENCIA [Concomitant]
     Active Substance: ABATACEPT
     Indication: PSORIASIS
     Dosage: UNK

REACTIONS (7)
  - Localised infection [Recovered/Resolved]
  - Arthropathy [Unknown]
  - Back pain [Unknown]
  - Erythema [Recovered/Resolved]
  - Product dose omission [Unknown]
  - Peripheral swelling [Recovered/Resolved]
  - Movement disorder [Unknown]
